FAERS Safety Report 19857446 (Version 2)
Quarter: 2021Q3

REPORT INFORMATION
  Report Type: Spontaneous
  Country: FI (occurrence: FI)
  Receive Date: 20210920
  Receipt Date: 20210928
  Transmission Date: 20211014
  Serious: Yes (Other)
  Sender: FDA-Public Use
  Company Number: FI-ASTRAZENECA-2021A728454

PATIENT
  Sex: Male

DRUGS (1)
  1. DAXAS [Suspect]
     Active Substance: ROFLUMILAST
     Indication: CHRONIC OBSTRUCTIVE PULMONARY DISEASE
     Dosage: 500 UG
     Route: 048
     Dates: start: 2010

REACTIONS (2)
  - Intentional product misuse [Unknown]
  - Bronchial carcinoma [Unknown]
